FAERS Safety Report 4993261-1 (Version None)
Quarter: 2006Q1

REPORT INFORMATION
  Report Type: 
  Country: None (occurrence: None)
  Receive Date: 20060314
  Receipt Date: 20050808
  Transmission Date: 20060701
  Serious: Yes (Other)
  Sender: FDA-Public Use
  Company Number: 200511770BCC

PATIENT
  Sex: Female

DRUGS (3)
  1. ALEVE [Suspect]
     Dosage: ORAL
     Route: 048
  2. ASPIRIN [Suspect]
  3. PRESCRIPTION MEDICATION (UNCODEABLE ^UNCLASSIFIABLE^) [Suspect]

REACTIONS (1)
  - GASTROINTESTINAL ULCER [None]
